FAERS Safety Report 13373244 (Version 4)
Quarter: 2020Q3

REPORT INFORMATION
  Report Type: Report from Study
  Country: DE (occurrence: DE)
  Receive Date: 20170327
  Receipt Date: 20200928
  Transmission Date: 20201102
  Serious: Yes (Hospitalization)
  Sender: FDA-Public Use
  Company Number: DE-ROCHE-1910252

PATIENT
  Age: 53 Year
  Sex: Female
  Weight: 60 kg

DRUGS (8)
  1. PANTOPRAZOL [Concomitant]
     Active Substance: PANTOPRAZOLE SODIUM
     Dates: start: 20170321
  2. PARACETAMOL [Concomitant]
     Active Substance: ACETAMINOPHEN
     Dates: start: 20170321
  3. METRONIDAZOL [Concomitant]
     Active Substance: METRONIDAZOLE
     Dosage: DOSE AS REQUIRED
     Dates: start: 20170321
  4. IDEOS [Concomitant]
     Active Substance: CALCIUM CARBONATE\CHOLECALCIFEROL
     Dates: start: 20170321
  5. COBIMETINIB. [Suspect]
     Active Substance: COBIMETINIB
     Indication: MALIGNANT MELANOMA
     Dosage: DATE OF LAST DOSE PRIOR TO SAE (SERIOUS ADVERSE EVENT) WAS ON 21/MAR/2017
     Route: 048
     Dates: start: 20170311
  6. PREDNISOLON [Concomitant]
     Active Substance: PREDNISOLONE
     Dosage: 1 OTHER
     Dates: start: 20170321, end: 20170328
  7. VEMURAFENIB. [Suspect]
     Active Substance: VEMURAFENIB
     Indication: MALIGNANT MELANOMA
     Dosage: DATE OF LAST DOSE PRIOR TO SAE (SERIOUS ADVERSE EVENT) WAS ON 21/MAR/2017
     Route: 048
     Dates: start: 20170311
  8. CETIRIZIN [Concomitant]
     Active Substance: CETIRIZINE HYDROCHLORIDE
     Dates: start: 20170321

REACTIONS (1)
  - Stevens-Johnson syndrome [Recovered/Resolved]

NARRATIVE: CASE EVENT DATE: 20170321
